FAERS Safety Report 8634493 (Version 2)
Quarter: 2013Q1

REPORT INFORMATION
  Report Type: Spontaneous
  Country: US (occurrence: JP)
  Receive Date: 20120626
  Receipt Date: 20121123
  Transmission Date: 20140127
  Serious: Yes (Hospitalization, Other)
  Sender: FDA-Public Use
  Company Number: JP-PFIZER INC-2012149328

PATIENT
  Sex: Female

DRUGS (1)
  1. ZEMAIRA [Suspect]
     Indication: ALPHA-1 ANTI-TRYPSIN DEFICIENCY
     Dosage: 0.125 MG OR 0.25 MG C.A ONCE EVERY 3 DAYS
     Route: 048

REACTIONS (2)
  - Pneumonia [Unknown]
  - Dyspnoea [None]
